FAERS Safety Report 18877656 (Version 5)
Quarter: 2021Q2

REPORT INFORMATION
  Report Type: Spontaneous
  Country: US (occurrence: US)
  Receive Date: 20210211
  Receipt Date: 20210622
  Transmission Date: 20210717
  Serious: No
  Sender: FDA-Public Use
  Company Number: US-SA-2021SA039556

PATIENT
  Age: 46 Year
  Sex: Female

DRUGS (3)
  1. DUPIXENT [Suspect]
     Active Substance: DUPILUMAB
     Dosage: 300 MG, QOW
     Route: 058
     Dates: start: 202004
  2. NURTEC ODT [Concomitant]
     Active Substance: RIMEGEPANT SULFATE
     Dosage: RAPDIS
  3. DUPIXENT [Suspect]
     Active Substance: DUPILUMAB
     Indication: ASTHMA
     Dosage: 600 MG, 1X
     Route: 058
     Dates: start: 20200414, end: 20200414

REACTIONS (11)
  - Chest discomfort [Unknown]
  - Muscular weakness [Not Recovered/Not Resolved]
  - Wheezing [Unknown]
  - Balance disorder [Not Recovered/Not Resolved]
  - Cough [Unknown]
  - Dysstasia [Not Recovered/Not Resolved]
  - Pharyngitis [Unknown]
  - Migraine [Unknown]
  - Dyspnoea [Unknown]
  - Injection site pain [Unknown]
  - Product use issue [Unknown]

NARRATIVE: CASE EVENT DATE: 202105
